FAERS Safety Report 9216561 (Version 1)
Quarter: 2013Q2

REPORT INFORMATION
  Report Type: Spontaneous
  Country: US (occurrence: US)
  Receive Date: 20130408
  Receipt Date: 20130408
  Transmission Date: 20140414
  Serious: No
  Sender: FDA-Public Use
  Company Number: US-PFIZER INC-2013109893

PATIENT
  Age: 84 Year
  Sex: Male
  Weight: 77.1 kg

DRUGS (13)
  1. LYRICA [Suspect]
     Indication: DIABETIC NEUROPATHY
     Dosage: 150 MG, 1X/DAY
     Dates: start: 201302, end: 201303
  2. LYRICA [Suspect]
     Dosage: 75 MG, 1X/DAY
     Dates: start: 20130329
  3. ASMANEX [Concomitant]
     Dosage: UNK (INHALER)
  4. CLONAZEPAM [Concomitant]
     Dosage: 0.25 MG, UNK
  5. PLAVIX [Concomitant]
     Dosage: 75 MG, UNK
  6. CYMBALTA [Concomitant]
     Dosage: UNK
  7. METOPROLOL [Concomitant]
     Dosage: 50 MG, UNK
  8. METFORMIN [Concomitant]
     Dosage: 500 MG, UNK
  9. AVODART [Concomitant]
     Dosage: 0.5 MG, UNK
  10. TRICOR [Concomitant]
     Dosage: 145 MG, UNK
  11. ECOTRIN [Concomitant]
     Dosage: 81 MG, UNK
  12. DILTIAZEM [Concomitant]
     Dosage: UNK
  13. SIMVASTATIN [Concomitant]
     Dosage: UNK

REACTIONS (5)
  - Vision blurred [Not Recovered/Not Resolved]
  - Balance disorder [Not Recovered/Not Resolved]
  - Tongue disorder [Not Recovered/Not Resolved]
  - Dizziness [Not Recovered/Not Resolved]
  - Neuralgia [Recovered/Resolved]
